FAERS Safety Report 17164851 (Version 1)
Quarter: 2019Q4

REPORT INFORMATION
  Report Type: Spontaneous
  Country: US (occurrence: US)
  Receive Date: 20191217
  Receipt Date: 20191217
  Transmission Date: 20200122
  Serious: Yes (Other)
  Sender: FDA-Public Use
  Company Number: US-ROCHE-2291740

PATIENT
  Age: 60 Year
  Sex: Male
  Weight: 83.99 kg

DRUGS (3)
  1. LUCENTIS [Suspect]
     Active Substance: RANIBIZUMAB
     Dosage: ONGOING: NO
     Route: 065
     Dates: start: 2017, end: 2018
  2. LUCENTIS [Suspect]
     Active Substance: RANIBIZUMAB
     Indication: RETINAL VASCULAR OCCLUSION
     Dosage: NO
     Route: 065
     Dates: start: 2017, end: 2017
  3. LUCENTIS [Suspect]
     Active Substance: RANIBIZUMAB
     Route: 065
     Dates: start: 20190325

REACTIONS (2)
  - Swelling [Not Recovered/Not Resolved]
  - Cataract [Unknown]

NARRATIVE: CASE EVENT DATE: 201902
